FAERS Safety Report 8521794-X (Version None)
Quarter: 2012Q3

REPORT INFORMATION
  Report Type: 
  Country: None (occurrence: None)
  Receive Date: 20120719
  Receipt Date: 20120329
  Transmission Date: 20120928
  Serious: No
  Sender: FDA-Public Use
  Company Number: US-BRISTOL-MYERS SQUIBB COMPANY-16430456

PATIENT
  Age: 30 Year
  Sex: Male

DRUGS (1)
  1. YERVOY [Suspect]
     Dosage: EVERY 3 WEEK X 4
     Route: 042
     Dates: start: 20120131

REACTIONS (1)
  - RASH [None]
